FAERS Safety Report 22247109 (Version 1)
Quarter: 2023Q2

REPORT INFORMATION
  Report Type: Spontaneous
  Country: None (occurrence: US)
  Receive Date: 20230424
  Receipt Date: 20230424
  Transmission Date: 20230722
  Serious: No
  Sender: FDA-Public Use
  Company Number: US-Marksans Pharma Limited-2140745

PATIENT
  Age: 51 Year
  Sex: Female
  Weight: 72.727 kg

DRUGS (1)
  1. CETIRIZINE [Suspect]
     Active Substance: CETIRIZINE HYDROCHLORIDE
     Indication: Hypersensitivity
     Route: 048

REACTIONS (1)
  - Drug ineffective [None]
